FAERS Safety Report 14612825 (Version 1)
Quarter: 2018Q1

REPORT INFORMATION
  Report Type: Report from Study
  Country: None (occurrence: ES)
  Receive Date: 20180308
  Receipt Date: 20180308
  Transmission Date: 20180509
  Serious: Yes (Hospitalization)
  Sender: FDA-Public Use
  Company Number: ES-ABBVIE-18P-144-2278179-00

PATIENT
  Age: 55 Year
  Sex: Male

DRUGS (2)
  1. ACALABRUTINIB. [Concomitant]
     Active Substance: ACALABRUTINIB
     Indication: CHRONIC LYMPHOCYTIC LEUKAEMIA
     Dates: start: 201601
  2. VENETOCLAX. [Suspect]
     Active Substance: VENETOCLAX
     Indication: CHRONIC LYMPHOCYTIC LEUKAEMIA
     Route: 048
     Dates: start: 20180220

REACTIONS (5)
  - Renal impairment [Recovering/Resolving]
  - Blood lactate dehydrogenase increased [Recovering/Resolving]
  - White blood cell count increased [Recovering/Resolving]
  - Lymphadenopathy [Recovering/Resolving]
  - Tumour flare [Recovering/Resolving]

NARRATIVE: CASE EVENT DATE: 20180227
